FAERS Safety Report 4521578-3 (Version None)
Quarter: 2004Q4

REPORT INFORMATION
  Report Type: 
  Country: None (occurrence: None)
  Receive Date: 20041208
  Receipt Date: 20041208
  Transmission Date: 20050328
  Serious: Yes (Life-Threatening)
  Sender: FDA-Public Use
  Company Number: None

PATIENT
  Age: 40 Year
  Sex: Male
  Weight: 57 kg

DRUGS (2)
  1. AMBISOME [Suspect]
     Indication: MENINGITIS
     Dosage: 240 MG DAILY INTRAVENOUS
     Route: 042
     Dates: start: 20041106, end: 20041206
  2. AMBISOME [Suspect]
     Indication: PNEUMONIA
     Dosage: 240 MG DAILY INTRAVENOUS
     Route: 042
     Dates: start: 20041106, end: 20041206

REACTIONS (2)
  - BLOOD POTASSIUM INCREASED [None]
  - CARDIO-RESPIRATORY ARREST [None]
